FAERS Safety Report 8777558 (Version 4)
Quarter: 2014Q2

REPORT INFORMATION
  Report Type: Spontaneous
  Country: US (occurrence: US)
  Receive Date: 20120912
  Receipt Date: 20140505
  Transmission Date: 20141212
  Serious: Yes (Other)
  Sender: FDA-Public Use
  Company Number: US-VERTEX PHARMACEUTICAL INC.-AE-2012-003226

PATIENT
  Age: 9 Year
  Sex: Male
  Weight: 40.82 kg

DRUGS (15)
  1. KALYDECO [Suspect]
     Indication: CYSTIC FIBROSIS
     Dosage: 150 MG, BID
     Route: 048
     Dates: start: 20120210, end: 20120328
  2. FLOVENT [Concomitant]
     Indication: ASTHMA
  3. SINGULAIR [Concomitant]
  4. AZITHROMYCIN [Concomitant]
  5. PRILOSEC [Concomitant]
  6. MIRALAX [Concomitant]
  7. PULMOZYME [Concomitant]
  8. HYPERTONIC SALINE SOLUTION [Suspect]
  9. LACTOBACILLUS [Concomitant]
  10. CALRITIN [Concomitant]
  11. VITAMAX [Concomitant]
  12. ZENPEP [Concomitant]
  13. ALBUTEROL [Concomitant]
     Indication: ASTHMA
  14. ZITHROMAX [Concomitant]
  15. BENEFIBER [Concomitant]
     Dosage: UNK, QD

REACTIONS (30)
  - Bronchiectasis [Unknown]
  - Sleep disorder [Recovered/Resolved]
  - Stomatitis [Recovered/Resolved]
  - Nightmare [Recovered/Resolved]
  - Chills [Recovered/Resolved]
  - Flatulence [Recovering/Resolving]
  - Decreased appetite [Recovered/Resolved]
  - Anger [Recovered/Resolved]
  - Hot flush [Recovered/Resolved]
  - Affect lability [Recovering/Resolving]
  - Sleep terror [Recovered/Resolved]
  - Anxiety [Not Recovered/Not Resolved]
  - Palpitations [Recovered/Resolved]
  - Chest pain [Recovered/Resolved]
  - Vomiting [Recovered/Resolved]
  - Pallor [Recovered/Resolved]
  - Thirst [Recovered/Resolved]
  - Disturbance in attention [Recovered/Resolved]
  - Lethargy [Recovered/Resolved]
  - Affect lability [Recovered/Resolved]
  - Fatigue [Recovered/Resolved]
  - Weight increased [Recovered/Resolved]
  - Musculoskeletal pain [Recovered/Resolved]
  - Myalgia [Recovered/Resolved]
  - Arthralgia [Recovering/Resolving]
  - Nausea [Recovered/Resolved]
  - Diarrhoea [Recovered/Resolved]
  - Abdominal pain [Recovered/Resolved]
  - Headache [Recovered/Resolved]
  - Dizziness [Recovered/Resolved]
